FAERS Safety Report 18343824 (Version 1)
Quarter: 2020Q4

REPORT INFORMATION
  Report Type: Report from Study
  Country: AR (occurrence: AR)
  Receive Date: 20201005
  Receipt Date: 20201005
  Transmission Date: 20210114
  Serious: Yes (Hospitalization)
  Sender: FDA-Public Use
  Company Number: AR-JNJFOC-A-CH2018-183854

PATIENT
  Age: 33 Year
  Sex: Female
  Weight: 55 kg

DRUGS (1)
  1. OPSUMIT [Suspect]
     Active Substance: MACITENTAN
     Indication: PULMONARY ARTERIAL HYPERTENSION
     Dosage: 10 MG, QD
     Route: 048
     Dates: start: 20160102

REACTIONS (6)
  - Agitation [Unknown]
  - Dyspnoea [Unknown]
  - Product supply issue [Unknown]
  - Chest pain [Unknown]
  - Product dose omission issue [Unknown]
  - Pneumonia [Unknown]

NARRATIVE: CASE EVENT DATE: 20200608
